FAERS Safety Report 26099345 (Version 1)
Quarter: 2025Q4

REPORT INFORMATION
  Report Type: Spontaneous
  Country: US (occurrence: US)
  Receive Date: 20251128
  Receipt Date: 20251128
  Transmission Date: 20260117
  Serious: No
  Sender: UNICHEM
  Company Number: US-UNICHEM LABORATORIES LIMITED-UCM202412-001630

PATIENT

DRUGS (6)
  1. AMLODIPINE [Suspect]
     Active Substance: AMLODIPINE BESYLATE
     Indication: Hypertension
     Dosage: 5,MILLIGRAM,QD
  2. METOPROLOL [Concomitant]
     Active Substance: METOPROLOL
     Indication: Hypertension
     Dosage: 25,MILLIGRAM,QD
  3. HYDROCHLOROTHIAZIDE (NON-MAH) [Concomitant]
     Indication: Hypertension
     Dosage: 25,MILLIGRAM,UNKNOWN
  4. PRUGO [Concomitant]
     Indication: Product used for unknown indication
     Dosage: 10,MILLIGRAM,QD
  5. FARXIGA [Concomitant]
     Active Substance: DAPAGLIFLOZIN PROPANEDIOL
     Indication: Product used for unknown indication
     Dosage: UNK
  6. OZEMPIC [Concomitant]
     Active Substance: SEMAGLUTIDE
     Indication: Product used for unknown indication
     Dosage: 1,MILLIGRAM,WEEKS

REACTIONS (3)
  - Adverse drug reaction [Unknown]
  - Blood pressure increased [Recovered/Resolved]
  - Drug ineffective [Unknown]
